FAERS Safety Report 12799561 (Version 3)
Quarter: 2017Q1

REPORT INFORMATION
  Report Type: Report from Study
  Country: BE (occurrence: BE)
  Receive Date: 20160930
  Receipt Date: 20170217
  Transmission Date: 20170428
  Serious: Yes (Hospitalization)
  Sender: FDA-Public Use
  Company Number: PHHO2016BE013896

PATIENT
  Age: 34 Year
  Sex: Female
  Weight: 46 kg

DRUGS (22)
  1. AMN107 [Suspect]
     Active Substance: NILOTINIB
     Indication: ACUTE LYMPHOCYTIC LEUKAEMIA
     Dosage: UNK
     Route: 048
     Dates: end: 20161221
  2. FOLAVIT [Concomitant]
     Indication: ANAEMIA
     Dosage: 4 MG, UNK
     Route: 048
  3. PANTOMED [Concomitant]
     Active Substance: DEXPANTHENOL
     Indication: GASTRIC ULCER
     Dosage: 40 MG
     Route: 048
  4. ARACYTINE [Suspect]
     Active Substance: CYTARABINE
     Indication: PRODUCT USED FOR UNKNOWN INDICATION
     Dosage: 4341 MG, BID
     Route: 065
     Dates: start: 20160907, end: 20160908
  5. SYNGEL [Concomitant]
     Indication: GASTRIC ULCER
     Dosage: 10 ML, TID
     Route: 048
     Dates: start: 20160916
  6. MORPHINE [Concomitant]
     Active Substance: MORPHINE
     Indication: MUCOSAL INFLAMMATION
     Dosage: 30 MG, UNK
     Route: 042
     Dates: start: 20160917
  7. TAVANIC [Concomitant]
     Active Substance: LEVOFLOXACIN
     Indication: INFECTION PROPHYLAXIS
     Dosage: 500 MG, UNK
     Route: 048
     Dates: start: 20160916
  8. ATRIANCE [Suspect]
     Active Substance: NELARABINE
     Indication: PRODUCT USED FOR UNKNOWN INDICATION
     Dosage: UNK
     Route: 065
     Dates: end: 20161221
  9. METHOTREXATE. [Suspect]
     Active Substance: METHOTREXATE
     Indication: PRODUCT USED FOR UNKNOWN INDICATION
     Dosage: 1447 MG, UNK
     Route: 042
     Dates: start: 20160905
  10. ARACYTINE [Suspect]
     Active Substance: CYTARABINE
     Dosage: 4716 MG, BID
     Route: 065
     Dates: start: 20161108, end: 20161110
  11. BACTRIM [Concomitant]
     Active Substance: SULFAMETHOXAZOLE\TRIMETHOPRIM
     Indication: INFECTION PROPHYLAXIS
     Dosage: 160/180 GR
     Route: 048
  12. DIFLUCAN [Concomitant]
     Active Substance: FLUCONAZOLE
     Indication: PROPHYLAXIS
     Dosage: 50 MG, UNK
     Route: 048
     Dates: start: 20160917
  13. ZOVIRAX [Concomitant]
     Active Substance: ACYCLOVIR
     Indication: INFECTION PROPHYLAXIS
     Dosage: 800 MG, UNK
     Route: 048
  14. METHOTREXATE. [Suspect]
     Active Substance: METHOTREXATE
     Dosage: 1572 MG, UNK
     Route: 042
     Dates: start: 20161108
  15. COCAINE [Concomitant]
     Active Substance: COCAINE
     Indication: PRODUCT USED FOR UNKNOWN INDICATION
     Route: 065
  16. MOUTH WASH [Concomitant]
     Indication: PROPHYLAXIS
     Dosage: UNK
     Route: 048
  17. SPRYCEL [Suspect]
     Active Substance: DASATINIB
     Indication: PRODUCT USED FOR UNKNOWN INDICATION
     Dosage: 140 MG, UNK
     Route: 048
  18. SPRYCEL [Suspect]
     Active Substance: DASATINIB
     Dosage: 100 MG
     Route: 048
  19. FRAXIPARINE [Concomitant]
     Active Substance: NADROPARIN CALCIUM
     Indication: PROPHYLAXIS
     Dosage: 2850 U, UNK
     Route: 042
     Dates: start: 20160917
  20. MOVICOL [Concomitant]
     Active Substance: POLYETHYLENE GLYCOL 3350\POTASSIUM CHLORIDE\SODIUM BICARBONATE\SODIUM CHLORIDE
     Indication: CONSTIPATION
     Dosage: 13.7 GR
     Route: 048
     Dates: start: 20160917
  21. BIFITERAL [Concomitant]
     Active Substance: LACTULOSE
     Indication: CONSTIPATION
     Dosage: 20 ML, BID
     Route: 048
     Dates: start: 20160917
  22. ACYCLOVIR. [Concomitant]
     Active Substance: ACYCLOVIR
     Indication: INFECTION PROPHYLAXIS
     Dosage: 800 MG
     Route: 048

REACTIONS (2)
  - Mucosal inflammation [Recovered/Resolved]
  - Hepatitis [Not Recovered/Not Resolved]

NARRATIVE: CASE EVENT DATE: 20160915
